FAERS Safety Report 5445763-1 (Version None)
Quarter: 2007Q3

REPORT INFORMATION
  Report Type: 
  Country: None (occurrence: None)
  Receive Date: 20070904
  Receipt Date: 20070725
  Transmission Date: 20080115
  Serious: Yes (Other)
  Sender: FDA-Public Use
  Company Number: CHNY2007BR02763

PATIENT
  Age: 70 Year
  Sex: Female
  Weight: 57 kg

DRUGS (2)
  1. BENEFIBER (NCH)(GUAR GUM) POWDER [Suspect]
     Indication: CONSTIPATION
     Dosage: ORAL
     Route: 048
     Dates: end: 20070724
  2. TANAKAN (GINKGO BILOBA EXTRACT) [Concomitant]

REACTIONS (1)
  - LABYRINTHITIS [None]
